FAERS Safety Report 10725831 (Version 1)
Quarter: 2015Q1

REPORT INFORMATION
  Report Type: Spontaneous
  Country: US (occurrence: None)
  Receive Date: 20150116
  Receipt Date: 20150116
  Transmission Date: 20150721
  Serious: Yes (Other)
  Sender: FDA-Public Use
  Company Number: None

PATIENT
  Age: 72 Year
  Sex: Female

DRUGS (1)
  1. AFINITOR [Suspect]
     Active Substance: EVEROLIMUS
     Indication: BREAST CANCER
     Route: 048
     Dates: start: 20141107, end: 20150109

REACTIONS (4)
  - Cough [None]
  - Tumour marker increased [None]
  - Upper respiratory tract infection [None]
  - Viral infection [None]

NARRATIVE: CASE EVENT DATE: 20150109
